FAERS Safety Report 7976868-9 (Version None)
Quarter: 2011Q4

REPORT INFORMATION
  Report Type: 
  Country: None (occurrence: None)
  Receive Date: 20111213
  Receipt Date: 20111110
  Transmission Date: 20120403
  Serious: No
  Sender: FDA-Public Use
  Company Number: US-AMGEN-USASP2011059111

PATIENT
  Age: 42 Year
  Sex: Female

DRUGS (5)
  1. VICODIN [Concomitant]
     Dosage: UNK
  2. FLEXERIL [Concomitant]
     Dosage: UNK
  3. SULFASALAZINE [Concomitant]
     Dosage: UNK
  4. ENBREL [Suspect]
     Indication: ANKYLOSING SPONDYLITIS
     Dosage: 50 MG, QWK
     Dates: start: 20111001
  5. ZYRTEC [Concomitant]
     Dosage: UNK

REACTIONS (5)
  - HYPOAESTHESIA [None]
  - SENSATION OF HEAVINESS [None]
  - URINE COLOUR ABNORMAL [None]
  - ARTHRALGIA [None]
  - PAIN IN EXTREMITY [None]
